FAERS Safety Report 8223447-4 (Version None)
Quarter: 2012Q1

REPORT INFORMATION
  Report Type: 
  Country: None (occurrence: None)
  Receive Date: 20120321
  Receipt Date: 20120313
  Transmission Date: 20120608
  Serious: Yes (Hospitalization)
  Sender: FDA-Public Use
  Company Number: US-BAYER-2011-075081

PATIENT
  Age: 21 Year
  Sex: Female
  Weight: 104 kg

DRUGS (5)
  1. YAZ [Suspect]
     Indication: CONTRACEPTION
     Dosage: UNK
     Route: 048
     Dates: start: 20060101, end: 20070101
  2. SUCRALFATE [Concomitant]
     Dosage: 1 G, UNK
  3. YASMIN [Suspect]
     Indication: CONTRACEPTION
     Dosage: UNK
     Route: 048
     Dates: start: 20060101, end: 20070101
  4. ACIPHEX [Concomitant]
     Dosage: 20 MG, UNK
  5. AZITHROMYCIN [Concomitant]
     Dosage: 250 MG, UNK
     Route: 048

REACTIONS (4)
  - PAIN [None]
  - CHOLECYSTECTOMY [None]
  - INJURY [None]
  - CHOLECYSTITIS ACUTE [None]
